FAERS Safety Report 4703557-6 (Version None)
Quarter: 2005Q2

REPORT INFORMATION
  Report Type: 
  Country: None (occurrence: None)
  Receive Date: 20050630
  Receipt Date: 20050621
  Transmission Date: 20051028
  Serious: Yes (Hospitalization)
  Sender: FDA-Public Use
  Company Number: US-JNJFOC-20050605860

PATIENT
  Age: 54 Year
  Sex: Female

DRUGS (14)
  1. TYLENOL (CAPLET) [Suspect]
     Indication: SLEEP DISORDER THERAPY
     Route: 049
  2. TYLENOL (CAPLET) [Suspect]
     Route: 049
  3. AMITRYPTYLINE [Concomitant]
     Route: 049
  4. INSULIN HUMULIN 50;50 [Concomitant]
  5. INSULIN HUMULIN 50;50 [Concomitant]
     Dosage: BID
  6. PLAVIX [Concomitant]
     Route: 049
  7. ALTACE [Concomitant]
     Route: 049
  8. VYTORIN [Concomitant]
     Route: 049
  9. METOPROLOL [Concomitant]
     Route: 049
  10. GLUCOPHAGE [Concomitant]
     Dosage: PO, PRN
     Route: 049
  11. IRON [Concomitant]
  12. ASPIRIN [Concomitant]
     Route: 049
  13. NORETHIN [Concomitant]
  14. NORETHIN [Concomitant]

REACTIONS (1)
  - HEART RATE INCREASED [None]
